FAERS Safety Report 12705322 (Version 2)
Quarter: 2016Q3

REPORT INFORMATION
  Report Type: Report from Study
  Country: US (occurrence: US)
  Receive Date: 20160831
  Receipt Date: 20160912
  Transmission Date: 20161109
  Serious: Yes (Other)
  Sender: FDA-Public Use
  Company Number: US-ROCHE-1822438

PATIENT

DRUGS (2)
  1. BEVACIZUMAB [Suspect]
     Active Substance: BEVACIZUMAB
     Indication: MALIGNANT GLIOMA
     Dosage: DAYS 1 + 15 (OVER 28-DAY CYCLES).
     Route: 042
  2. MARIZOMIB [Suspect]
     Active Substance: MARIZOMIB
     Indication: MALIGNANT GLIOMA
     Dosage: DAYS 1, 8, AND 15
     Route: 042

REACTIONS (2)
  - Fatigue [Unknown]
  - Hallucination [Unknown]
